FAERS Safety Report 24840878 (Version 1)
Quarter: 2025Q1

REPORT INFORMATION
  Report Type: Spontaneous
  Country: FR (occurrence: FR)
  Receive Date: 20250114
  Receipt Date: 20250114
  Transmission Date: 20250408
  Serious: Yes (Hospitalization, Other)
  Sender: SANOFI AVENTIS
  Company Number: None

PATIENT
  Age: 34 Year
  Sex: Female
  Weight: 60 kg

DRUGS (6)
  1. RIVAROXABAN [Suspect]
     Active Substance: RIVAROXABAN
     Indication: Wrong drug
     Route: 048
     Dates: start: 20241125, end: 20241125
  2. IRBESARTAN [Suspect]
     Active Substance: IRBESARTAN
     Indication: Wrong drug
     Route: 048
     Dates: start: 20241125, end: 20241125
  3. FERROUS SULFATE [Concomitant]
     Active Substance: FERROUS SULFATE
  4. Spasfon [Concomitant]
  5. FOLIC ACID [Concomitant]
     Active Substance: FOLIC ACID
  6. DOLIPRANE [Concomitant]
     Active Substance: ACETAMINOPHEN

REACTIONS (3)
  - Haemorrhage in pregnancy [Recovered/Resolved]
  - Wrong drug [Unknown]
  - Maternal exposure during pregnancy [Unknown]

NARRATIVE: CASE EVENT DATE: 20241125
